FAERS Safety Report 25769302 (Version 1)
Quarter: 2025Q3

REPORT INFORMATION
  Report Type: Spontaneous
  Country: US (occurrence: US)
  Receive Date: 20250906
  Receipt Date: 20250906
  Transmission Date: 20251020
  Serious: No
  Sender: EPIC PHARM
  Company Number: US-EPICPHARMA-US-2025EPCSPO00966

PATIENT

DRUGS (1)
  1. PROTRIPTYLINE HYDROCHLORIDE [Suspect]
     Active Substance: PROTRIPTYLINE HYDROCHLORIDE
     Indication: Product used for unknown indication
     Route: 065
     Dates: start: 20250617

REACTIONS (5)
  - Illness [Unknown]
  - Gait disturbance [Unknown]
  - Visual impairment [Unknown]
  - Tremor [Unknown]
  - Tachycardia [Unknown]

NARRATIVE: CASE EVENT DATE: 20250101
